FAERS Safety Report 25660231 (Version 2)
Quarter: 2025Q3

REPORT INFORMATION
  Report Type: Spontaneous
  Country: AE (occurrence: AE)
  Receive Date: 20250808
  Receipt Date: 20250818
  Transmission Date: 20251021
  Serious: Yes (Hospitalization, Other)
  Sender: MACLEODS
  Company Number: AE-MACLEODS PHARMA-MAC2025054533

PATIENT

DRUGS (3)
  1. TRAMADOL [Suspect]
     Active Substance: TRAMADOL
     Indication: Back pain
     Route: 065
  2. LYRICA [Suspect]
     Active Substance: PREGABALIN
     Indication: Back pain
     Route: 065
  3. AMLODIPINE [Concomitant]
     Active Substance: AMLODIPINE BESYLATE
     Indication: Hypertension
     Route: 065

REACTIONS (2)
  - Central sleep apnoea syndrome [Recovering/Resolving]
  - Rapid eye movement sleep behaviour disorder [Recovering/Resolving]
